FAERS Safety Report 4295025-3 (Version None)
Quarter: 2004Q1

REPORT INFORMATION
  Report Type: 
  Country: None (occurrence: None)
  Receive Date: 20040211
  Receipt Date: 20040130
  Transmission Date: 20041129
  Serious: Yes (Hospitalization)
  Sender: FDA-Public Use
  Company Number: 04P-151-0249245-00

PATIENT
  Age: 61 Year
  Sex: Male
  Weight: 73 kg

DRUGS (11)
  1. BIAXIN [Suspect]
     Dosage: 500 MG, 2 IN 1 D, PER ORAL
     Route: 048
     Dates: start: 20031227, end: 20031230
  2. DEPAKENE [Suspect]
     Indication: EPILEPSY
     Dosage: 500 MG, 3 IN 1 D, PER ORAL, YEARS
     Route: 048
  3. CODEINE SUL TAB [Suspect]
     Indication: COUGH
     Dosage: 75 MG, 1 IN 1 D, PER ORAL
     Route: 048
     Dates: start: 20031228, end: 20031230
  4. VORICONAZOLE [Suspect]
     Indication: ASPERGILLOSIS
     Dosage: 200 MG, 2 IN 1 D, PER ORAL
     Route: 048
     Dates: start: 20031229, end: 20040104
  5. ATORVASTATIN CALCIUM [Suspect]
     Dosage: 40 MG, 1 IN 1 D, PER ORAL, YEARS
     Route: 048
  6. CANDESARTAN CILEXETIL [Concomitant]
  7. ACETYLSALICYLIC ACID SRT [Concomitant]
  8. CLOPIDOGREL BISULFATE [Concomitant]
  9. HYDROCODONE BITARTRATE [Concomitant]
  10. ATROPINE [Concomitant]
  11. LORAZEPAM [Concomitant]

REACTIONS (7)
  - ASPERGILLOSIS [None]
  - BRADYPNOEA [None]
  - DEPRESSED LEVEL OF CONSCIOUSNESS [None]
  - DRUG INTERACTION [None]
  - MENINGITIS [None]
  - MIOSIS [None]
  - RESPIRATORY DEPRESSION [None]
